FAERS Safety Report 4840467-8 (Version None)
Quarter: 2005Q4

REPORT INFORMATION
  Report Type: 
  Country: None (occurrence: None)
  Receive Date: 20051129
  Receipt Date: 20051129
  Transmission Date: 20060501
  Serious: Yes (Life-Threatening, Hospitalization)
  Sender: FDA-Public Use
  Company Number: None

PATIENT
  Sex: Female
  Weight: 113 kg

DRUGS (1)
  1. LYMPHAZURIN [Suspect]
     Dosage: 5 ML  ONCE OTHER    ONE TIME DOSE
     Dates: start: 20050422, end: 20050422

REACTIONS (5)
  - ANAPHYLACTIC REACTION [None]
  - INCISION SITE HAEMORRHAGE [None]
  - MYOCARDIAL INFARCTION [None]
  - POSTOPERATIVE WOUND COMPLICATION [None]
  - PROCEDURAL COMPLICATION [None]
